FAERS Safety Report 6680102-X (Version None)
Quarter: 2010Q2

REPORT INFORMATION
  Report Type: 
  Country: None (occurrence: None)
  Receive Date: 20100413
  Receipt Date: 20100405
  Transmission Date: 20101027
  Serious: Yes (Hospitalization)
  Sender: FDA-Public Use
  Company Number: TR-WATSON-2010-04537

PATIENT
  Age: 23 Year
  Sex: Female

DRUGS (1)
  1. COLCHICINE (WATSON LABORATORIES) [Suspect]
     Indication: FAMILIAL MEDITERRANEAN FEVER
     Dosage: 1.5 MG, DAILY
     Route: 048

REACTIONS (4)
  - COELIAC DISEASE [None]
  - CONDITION AGGRAVATED [None]
  - DIARRHOEA [None]
  - WEIGHT DECREASED [None]
